FAERS Safety Report 8155622-1 (Version None)
Quarter: 2012Q1

REPORT INFORMATION
  Report Type: 
  Country: None (occurrence: None)
  Receive Date: 20120222
  Receipt Date: 20120216
  Transmission Date: 20120608
  Serious: No
  Sender: FDA-Public Use
  Company Number: US-PFIZER INC-2012042317

PATIENT
  Sex: Female

DRUGS (5)
  1. LYRICA [Suspect]
     Dosage: 150 MG, 2X/DAY
     Route: 048
  2. AMBIEN [Concomitant]
     Dosage: UNK
  3. ADDERALL 5 [Concomitant]
     Dosage: UNK
  4. IRON SLOW FE [Concomitant]
     Dosage: UNK
  5. SPRINTEC [Concomitant]
     Dosage: UNK

REACTIONS (1)
  - PAIN [None]
